FAERS Safety Report 7768941-5 (Version None)
Quarter: 2011Q3

REPORT INFORMATION
  Report Type: 
  Country: None (occurrence: None)
  Receive Date: 20110922
  Receipt Date: 20110114
  Transmission Date: 20111222
  Serious: No
  Sender: FDA-Public Use
  Company Number: US-ASTRAZENECA-2011SE02714

PATIENT
  Age: 28 Year
  Sex: Female
  Weight: 108.9 kg

DRUGS (3)
  1. SEROQUEL [Suspect]
     Indication: BIPOLAR I DISORDER
     Route: 048
     Dates: end: 20100101
  2. LITHIUM CARBONATE [Concomitant]
  3. LEXAPRO [Concomitant]

REACTIONS (4)
  - SOCIAL AVOIDANT BEHAVIOUR [None]
  - DEPRESSED MOOD [None]
  - WEIGHT INCREASED [None]
  - DRUG DOSE OMISSION [None]
